APPROVED DRUG PRODUCT: CIPROFLOXACIN
Active Ingredient: CIPROFLOXACIN
Strength: 400MG/40ML (10MG/ML)
Dosage Form/Route: INJECTABLE;INJECTION
Application: A078062 | Product #002
Applicant: BAXTER HEALTHCARE CORP
Approved: Apr 29, 2008 | RLD: No | RS: No | Type: DISCN